FAERS Safety Report 4601646-8 (Version None)
Quarter: 2005Q1

REPORT INFORMATION
  Report Type: 
  Country: None (occurrence: None)
  Receive Date: 20050308
  Receipt Date: 20041108
  Transmission Date: 20050727
  Serious: Yes (Hospitalization)
  Sender: FDA-Public Use
  Company Number: DE-GLAXOSMITHKLINE-D0045136A

PATIENT
  Age: 48 Year
  Sex: Female

DRUGS (6)
  1. QUILONUM RETARD [Suspect]
     Indication: SCHIZOAFFECTIVE DISORDER
     Dosage: 450MG PER DAY
     Route: 048
     Dates: start: 20040521
  2. LEPONEX [Suspect]
     Route: 048
     Dates: start: 20040507
  3. BELLADONNA HERB [Suspect]
     Dosage: 20DROP PER DAY
     Route: 048
     Dates: start: 20040521, end: 20040610
  4. DIAZEPAM [Concomitant]
     Route: 048
     Dates: start: 20040420
  5. ORFIRIL [Concomitant]
     Route: 048
     Dates: start: 20040420, end: 20040524
  6. HALDOL [Concomitant]
     Route: 048
     Dates: start: 20040420

REACTIONS (8)
  - CONSCIOUSNESS FLUCTUATING [None]
  - DELIRIUM [None]
  - DISORIENTATION [None]
  - DRUG INTERACTION [None]
  - HALLUCINATION [None]
  - HALLUCINATIONS, MIXED [None]
  - SEDATION [None]
  - SOMNOLENCE [None]
